FAERS Safety Report 19182766 (Version 1)
Quarter: 2021Q2

REPORT INFORMATION
  Report Type: Spontaneous
  Country: US (occurrence: US)
  Receive Date: 20210427
  Receipt Date: 20210427
  Transmission Date: 20210717
  Serious: No
  Sender: FDA-Public Use
  Company Number: US-ELI_LILLY_AND_COMPANY-US202104002866

PATIENT
  Age: 75 Year
  Sex: Female

DRUGS (9)
  1. BASAGLAR [Suspect]
     Active Substance: INSULIN GLARGINE
     Indication: DIABETES MELLITUS
     Dosage: 35 U, EACH MORNING
     Route: 058
  2. BASAGLAR [Suspect]
     Active Substance: INSULIN GLARGINE
     Dosage: 15 U, EACH EVENING
     Route: 058
  3. BASAGLAR [Suspect]
     Active Substance: INSULIN GLARGINE
     Dosage: 35 U, EACH MORNING
     Route: 058
  4. BASAGLAR [Suspect]
     Active Substance: INSULIN GLARGINE
     Dosage: 15 U, EACH EVENING
     Route: 058
  5. BASAGLAR [Suspect]
     Active Substance: INSULIN GLARGINE
     Indication: DIABETES MELLITUS
     Dosage: 35 U, EACH MORNING
     Route: 058
  6. BASAGLAR [Suspect]
     Active Substance: INSULIN GLARGINE
     Dosage: 35 U, EACH MORNING
     Route: 058
  7. BASAGLAR [Suspect]
     Active Substance: INSULIN GLARGINE
     Dosage: 15 U, EACH EVENING
     Route: 058
  8. BASAGLAR [Suspect]
     Active Substance: INSULIN GLARGINE
     Dosage: 15 U, EACH EVENING
     Route: 058
  9. NOVOLOG [Concomitant]
     Active Substance: INSULIN ASPART
     Indication: INSULIN-REQUIRING TYPE 2 DIABETES MELLITUS
     Dosage: 10 U, BID

REACTIONS (8)
  - Vision blurred [Unknown]
  - Abdominal distension [Recovering/Resolving]
  - Blood glucose increased [Recovering/Resolving]
  - Weight decreased [Unknown]
  - Glycosylated haemoglobin increased [Unknown]
  - Inappropriate schedule of product administration [Unknown]
  - Blood glucose decreased [Recovered/Resolved]
  - Accidental underdose [Recovering/Resolving]

NARRATIVE: CASE EVENT DATE: 20210330
